FAERS Safety Report 8025928-5 (Version None)
Quarter: 2012Q1

REPORT INFORMATION
  Report Type: 
  Country: None (occurrence: None)
  Receive Date: 20120105
  Receipt Date: 20110919
  Transmission Date: 20120608
  Serious: No
  Sender: FDA-Public Use
  Company Number: US-ABBOTT-11P-163-0851522-00

PATIENT
  Sex: Female

DRUGS (4)
  1. SYNTHROID [Suspect]
     Indication: PRODUCT USED FOR UNKNOWN INDICATION
     Dates: start: 20110915, end: 20110917
  2. LITHIUM [Concomitant]
     Indication: BIPOLAR I DISORDER
     Dosage: DAILY
  3. SYNTHROID [Suspect]
     Indication: HYPOTHYROIDISM
     Dates: start: 20110918
  4. SYNTHROID [Suspect]
     Indication: PRODUCT USED FOR UNKNOWN INDICATION
     Route: 048
     Dates: start: 20110701, end: 20110801

REACTIONS (6)
  - ASTHENIA [None]
  - ENERGY INCREASED [None]
  - AGGRESSION [None]
  - FATIGUE [None]
  - BLOOD THYROID STIMULATING HORMONE DECREASED [None]
  - DYSARTHRIA [None]
